FAERS Safety Report 5482544-7 (Version None)
Quarter: 2007Q4

REPORT INFORMATION
  Report Type: 
  Country: None (occurrence: None)
  Receive Date: 20071011
  Receipt Date: 20070702
  Transmission Date: 20080405
  Serious: No
  Sender: FDA-Public Use
  Company Number: A0661305A

PATIENT
  Age: 41 Year
  Sex: Female

DRUGS (5)
  1. TYKERB [Suspect]
     Indication: BREAST CANCER
     Dosage: 5TAB PER DAY
     Route: 048
     Dates: start: 20070611
  2. XELODA [Concomitant]
  3. FLEXERIL [Concomitant]
  4. MULTI-VITAMIN [Concomitant]
  5. OINTMENT [Concomitant]
     Indication: RASH

REACTIONS (1)
  - RASH [None]
